FAERS Safety Report 5382475-7 (Version None)
Quarter: 2007Q3

REPORT INFORMATION
  Report Type: 
  Country: None (occurrence: None)
  Receive Date: 20070703
  Receipt Date: 20061229
  Transmission Date: 20080115
  Serious: Yes (Other)
  Sender: FDA-Public Use
  Company Number: US-JNJFOC-20070100419

PATIENT
  Sex: Female

DRUGS (1)
  1. MOTRIN IB [Suspect]
     Indication: DRUG USE FOR UNKNOWN INDICATION
     Dosage: 40000 MG, 1 IN 1 DAY;
     Dates: start: 20061228, end: 20061228

REACTIONS (2)
  - ABDOMINAL PAIN UPPER [None]
  - INTENTIONAL OVERDOSE [None]
